FAERS Safety Report 6369626-2 (Version None)
Quarter: 2009Q3

REPORT INFORMATION
  Report Type: 
  Country: None (occurrence: None)
  Receive Date: 20090923
  Receipt Date: 20090911
  Transmission Date: 20100115
  Serious: Yes (Hospitalization)
  Sender: FDA-Public Use
  Company Number: CL-ROCHE-656405

PATIENT
  Sex: Female
  Weight: 46 kg

DRUGS (3)
  1. CAPECITABINE [Suspect]
     Indication: COLON CANCER
     Dosage: FREQUENCY: 1 DOSE/12 HOURS.
     Route: 048
     Dates: start: 20090819
  2. CONPREMIN [Concomitant]
     Dosage: DRUG NAME: COMBINED ESTROGENS.
  3. PYRIDOXIN [Concomitant]
     Dosage: DRUG NAME: PYRIDOXIN (VITABE)
     Route: 048

REACTIONS (2)
  - DEHYDRATION [None]
  - INTESTINAL OBSTRUCTION [None]
